FAERS Safety Report 4962529-7 (Version None)
Quarter: 2006Q2

REPORT INFORMATION
  Report Type: 
  Country: None (occurrence: None)
  Receive Date: 20060404
  Receipt Date: 20060327
  Transmission Date: 20061013
  Serious: Yes (Hospitalization)
  Sender: FDA-Public Use
  Company Number: US-ABBOTT-06P-163-0329428-00

PATIENT
  Sex: Female
  Weight: 72.64 kg

DRUGS (1)
  1. SYNTHROID [Suspect]
     Indication: HYPOTHYROIDISM
     Route: 048
     Dates: start: 19960101

REACTIONS (3)
  - CONFUSIONAL STATE [None]
  - COORDINATION ABNORMAL [None]
  - HYPOAESTHESIA [None]
